FAERS Safety Report 6542153-5 (Version None)
Quarter: 2010Q1

REPORT INFORMATION
  Report Type: 
  Country: None (occurrence: None)
  Receive Date: 20100119
  Receipt Date: 20100113
  Transmission Date: 20100710
  Serious: Yes (Hospitalization, Other)
  Sender: FDA-Public Use
  Company Number: IT-JNJFOC-20100104808

PATIENT
  Sex: Male

DRUGS (4)
  1. LEVOXACIN [Suspect]
     Indication: BRONCHITIS
     Route: 048
  2. CONCOR [Concomitant]
     Route: 065
  3. NEO LOTAN [Concomitant]
     Route: 065
  4. ZYLORIC [Concomitant]
     Route: 065

REACTIONS (3)
  - BALANCE DISORDER [None]
  - CONFUSIONAL STATE [None]
  - SOMNOLENCE [None]
